FAERS Safety Report 4453105-3 (Version None)
Quarter: 2004Q3

REPORT INFORMATION
  Report Type: 
  Country: None (occurrence: None)
  Receive Date: 20040813
  Receipt Date: 20040421
  Transmission Date: 20050211
  Serious: No
  Sender: FDA-Public Use
  Company Number: S04-USA-03460-01

PATIENT
  Age: 87 Year
  Sex: Female

DRUGS (6)
  1. NAMENDA [Suspect]
     Indication: DEMENTIA ALZHEIMER'S TYPE
     Dosage: 5 MG BID PO
     Route: 048
     Dates: start: 20040417, end: 20040423
  2. NAMENDA [Suspect]
     Indication: DEMENTIA ALZHEIMER'S TYPE
     Dosage: 5 MG QAM PO
     Route: 048
     Dates: start: 20040424, end: 20040428
  3. NAMENDA [Suspect]
     Indication: DEMENTIA ALZHEIMER'S TYPE
     Dosage: 10 MG QHS PO
     Route: 048
     Dates: start: 20040424, end: 20040428
  4. NAMENDA [Suspect]
     Indication: DEMENTIA ALZHEIMER'S TYPE
     Dosage: 5 MG QD PO
     Route: 048
     Dates: start: 20040410, end: 20040416
  5. ZYPREXA [Concomitant]
  6. ARICEPT [Concomitant]

REACTIONS (3)
  - FATIGUE [None]
  - RASH [None]
  - STUPOR [None]
